FAERS Safety Report 5139846-3 (Version None)
Quarter: 2006Q4

REPORT INFORMATION
  Report Type: 
  Country: None (occurrence: None)
  Receive Date: 20061026
  Receipt Date: 20061026
  Transmission Date: 20070319
  Serious: Yes (Hospitalization)
  Sender: FDA-Public Use
  Company Number: None

PATIENT
  Age: 47 Year
  Sex: Male
  Weight: 167 kg

DRUGS (12)
  1. BYETTA [Suspect]
     Indication: DIABETES MELLITUS NON-INSULIN-DEPENDENT
     Dosage: 5MCG   BID  SC
     Route: 058
     Dates: start: 20051122, end: 20060109
  2. GLUCOTROL [Concomitant]
  3. ALTACE [Concomitant]
  4. DYAZIDE [Concomitant]
  5. LASIX [Concomitant]
  6. METFORMIN HCL [Concomitant]
  7. ACTOS [Concomitant]
  8. LIPITOR [Concomitant]
  9. TRICOR [Concomitant]
  10. NIASPAN [Concomitant]
  11. LANTUS [Concomitant]
  12. ASPIRIN [Concomitant]

REACTIONS (12)
  - AGITATION [None]
  - ASTHENIA [None]
  - BLOOD CREATININE INCREASED [None]
  - BLOOD UREA INCREASED [None]
  - DYSGEUSIA [None]
  - EOSINOPHILS URINE PRESENT [None]
  - HAEMODIALYSIS [None]
  - IODINE UPTAKE DECREASED [None]
  - NAUSEA [None]
  - URINARY CASTS [None]
  - URINE OUTPUT DECREASED [None]
  - VOMITING [None]
